FAERS Safety Report 4595902-X (Version None)
Quarter: 2005Q1

REPORT INFORMATION
  Report Type: 
  Country: None (occurrence: None)
  Receive Date: 20050224
  Receipt Date: 20050224
  Transmission Date: 20050727
  Serious: Yes (Disabling)
  Sender: FDA-Public Use
  Company Number: None

PATIENT
  Age: 33 Year
  Sex: Female
  Weight: 55.3388 kg

DRUGS (4)
  1. ZOLOFT [Suspect]
     Indication: ANXIETY
     Dosage: 25MG    ONCE A DAY    ORAL
     Route: 048
     Dates: start: 20050214, end: 20050221
  2. ZOLOFT [Suspect]
     Indication: DEPRESSION
     Dosage: 25MG    ONCE A DAY    ORAL
     Route: 048
     Dates: start: 20050214, end: 20050221
  3. ZOLOFT [Suspect]
     Indication: PANIC DISORDER
     Dosage: 25MG    ONCE A DAY    ORAL
     Route: 048
     Dates: start: 20050214, end: 20050221
  4. ZOLOFT [Suspect]
     Dosage: 50MG    ONCE A DAY    ORAL
     Route: 048
     Dates: start: 20050221, end: 20050223

REACTIONS (6)
  - APATHY [None]
  - DIZZINESS [None]
  - FEELING ABNORMAL [None]
  - INFLUENZA LIKE ILLNESS [None]
  - IRRITABILITY [None]
  - LIBIDO DECREASED [None]
